FAERS Safety Report 22274159 (Version 1)
Quarter: 2023Q2

REPORT INFORMATION
  Report Type: Spontaneous
  Country: CA (occurrence: CA)
  Receive Date: 20230502
  Receipt Date: 20230502
  Transmission Date: 20230721
  Serious: Yes (Other)
  Sender: FDA-Public Use
  Company Number: CA-PFIZER INC-202300175606

PATIENT
  Age: 63 Year
  Sex: Male

DRUGS (2)
  1. SULFASALAZINE [Suspect]
     Active Substance: SULFASALAZINE
     Dosage: 1000 MG, 2X/DAY
  2. XELJANZ [Concomitant]
     Active Substance: TOFACITINIB CITRATE
     Indication: Rheumatoid arthritis
     Dosage: 5 MG, 2X/DAY
     Route: 048

REACTIONS (9)
  - Inflammatory bowel disease [Unknown]
  - C-reactive protein increased [Unknown]
  - Drug ineffective [Unknown]
  - Arthritis [Unknown]
  - Colitis [Unknown]
  - Arthralgia [Unknown]
  - Joint swelling [Unknown]
  - Musculoskeletal stiffness [Unknown]
  - Inflammation [Unknown]
